FAERS Safety Report 15900887 (Version 1)
Quarter: 2019Q1

REPORT INFORMATION
  Report Type: Spontaneous
  Country: GB (occurrence: GB)
  Receive Date: 20190201
  Receipt Date: 20190201
  Transmission Date: 20190417
  Serious: Yes (Other)
  Sender: FDA-Public Use
  Company Number: GB-ALLERGAN-1904605US

PATIENT
  Age: 57 Year
  Sex: Male
  Weight: 91.62 kg

DRUGS (1)
  1. NITROGLYCERIN - BP [Suspect]
     Active Substance: NITROGLYCERIN
     Indication: PROCTALGIA
     Dosage: UNK SMALL
     Route: 061
     Dates: start: 20181114, end: 20181125

REACTIONS (2)
  - Headache [Recovered/Resolved]
  - Neck pain [Recovered/Resolved]

NARRATIVE: CASE EVENT DATE: 20181115
